FAERS Safety Report 12078829 (Version 2)
Quarter: 2016Q1

REPORT INFORMATION
  Report Type: Report from Study
  Country: AR (occurrence: AR)
  Receive Date: 20160216
  Receipt Date: 20160314
  Transmission Date: 20160526
  Serious: Yes (Other)
  Sender: FDA-Public Use
  Company Number: PHHY2016AR019669

PATIENT
  Sex: Male

DRUGS (1)
  1. DIOVAN [Suspect]
     Active Substance: VALSARTAN
     Indication: HYPERTENSION
     Dosage: 1 DF, QD (80, UNITS NOT REPORTED)
     Route: 065

REACTIONS (6)
  - Adenoidal hypertrophy [Recovering/Resolving]
  - Sinusitis [None]
  - Nasopharyngitis [Recovering/Resolving]
  - Increased bronchial secretion [Recovering/Resolving]
  - Nasal polyps [None]
  - Hypoacusis [Recovering/Resolving]
